FAERS Safety Report 5639061-0 (Version None)
Quarter: 2008Q1

REPORT INFORMATION
  Report Type: 
  Country: None (occurrence: None)
  Receive Date: 20080226
  Receipt Date: 20080221
  Transmission Date: 20080703
  Serious: Yes (Hospitalization)
  Sender: FDA-Public Use
  Company Number: HK-BRISTOL-MYERS SQUIBB COMPANY-14085682

PATIENT
  Age: 49 Year
  Sex: Female

DRUGS (12)
  1. BLINDED: ABATACEPT [Suspect]
     Indication: GLOMERULONEPHRITIS PROLIFERATIVE
     Route: 042
     Dates: start: 20080131
  2. BLINDED: PLACEBO [Suspect]
     Indication: GLOMERULONEPHRITIS PROLIFERATIVE
     Route: 042
     Dates: start: 20080131
  3. MYCOPHENOLATE MOFETIL [Suspect]
     Indication: GLOMERULONEPHRITIS PROLIFERATIVE
     Route: 048
     Dates: start: 20080131
  4. FOLIC ACID [Concomitant]
     Dates: start: 19950101
  5. PARIET [Concomitant]
     Dates: start: 20080124
  6. RAMIPRIL [Concomitant]
     Dates: start: 20050215
  7. LASIX [Concomitant]
     Dates: start: 20080214
  8. BETALOC [Concomitant]
     Dates: start: 20080124
  9. SLOW-K [Concomitant]
     Dates: start: 20080124
  10. ZOPLICONE [Concomitant]
     Dates: start: 20020516
  11. PREDNISOLONE [Concomitant]
     Dates: start: 19880101
  12. AQUEOUS CREAM [Concomitant]
     Dates: start: 20080214

REACTIONS (2)
  - GENITAL HERPES [None]
  - HERPES ZOSTER [None]
